FAERS Safety Report 20069469 (Version 1)
Quarter: 2021Q4

REPORT INFORMATION
  Report Type: Spontaneous
  Country: US (occurrence: None)
  Receive Date: 20211113
  Receipt Date: 20211113
  Transmission Date: 20220303
  Serious: Yes (Disabling)
  Sender: FDA-Public Use
  Company Number: None

PATIENT
  Age: 50 Year
  Sex: Female
  Weight: 74.25 kg

DRUGS (3)
  1. .DELTA.8-TETRAHYDROCANNABINOL\HERBALS [Suspect]
     Active Substance: .DELTA.8-TETRAHYDROCANNABINOL\HERBALS
     Indication: Substance use
     Dosage: OTHER QUANTITY : 1 GUMMY;?FREQUENCY : AS NEEDED;?
     Route: 048
     Dates: start: 20211112, end: 20211112
  2. ADVIL [Concomitant]
     Active Substance: IBUPROFEN
  3. VITAMINS [Concomitant]
     Active Substance: VITAMINS

REACTIONS (14)
  - Dizziness [None]
  - Vertigo [None]
  - Nausea [None]
  - Dysstasia [None]
  - Gait disturbance [None]
  - Vomiting [None]
  - Lethargy [None]
  - Somnolence [None]
  - Loss of consciousness [None]
  - Dyspnoea [None]
  - Tachycardia [None]
  - Bradypnoea [None]
  - Hyperhidrosis [None]
  - Intentional overdose [None]

NARRATIVE: CASE EVENT DATE: 20211112
